FAERS Safety Report 24952372 (Version 1)
Quarter: 2025Q1

REPORT INFORMATION
  Report Type: Spontaneous
  Country: US (occurrence: US)
  Receive Date: 20250210
  Receipt Date: 20250210
  Transmission Date: 20250408
  Serious: No
  Sender: DERMAVANT SCIENCES
  Company Number: US-Dermavant-001939

PATIENT
  Sex: Female

DRUGS (2)
  1. VTAMA [Suspect]
     Active Substance: TAPINAROF
     Indication: Eczema
     Route: 061
     Dates: start: 20241231
  2. VTAMA [Suspect]
     Active Substance: TAPINAROF
     Indication: Eczema
     Route: 061
     Dates: start: 20250104

REACTIONS (1)
  - Drug ineffective [Unknown]
